FAERS Safety Report 21730973 (Version 4)
Quarter: 2023Q1

REPORT INFORMATION
  Report Type: Spontaneous
  Country: US (occurrence: US)
  Receive Date: 20221215
  Receipt Date: 20230204
  Transmission Date: 20230417
  Serious: No
  Sender: FDA-Public Use
  Company Number: US-UNITED THERAPEUTICS-UNT-2022-030275

PATIENT
  Age: 46 Year
  Sex: Female
  Weight: 103.4 kg

DRUGS (3)
  1. REMODULIN [Suspect]
     Active Substance: TREPROSTINIL
     Indication: Pulmonary arterial hypertension
     Dosage: 0.016 ?G/KG, CONTINUING
     Route: 058
     Dates: start: 20221206
  2. REMODULIN [Suspect]
     Active Substance: TREPROSTINIL
     Dosage: 0.024 ?G/KG, CONTINUING (PHARMACY PRE-FILLED WITH 3 ML PER CASSETTE; PUMP RATE OF 31 MCL PER HOUR)
     Route: 058
  3. TADALAFIL [Concomitant]
     Active Substance: TADALAFIL
     Indication: Product used for unknown indication
     Dosage: UNK
     Route: 065

REACTIONS (10)
  - Device information output issue [Not Recovered/Not Resolved]
  - Infusion site pain [Not Recovered/Not Resolved]
  - Infusion site erythema [Not Recovered/Not Resolved]
  - Infusion site swelling [Not Recovered/Not Resolved]
  - Infusion site haemorrhage [Recovered/Resolved]
  - Infusion site discharge [Recovered/Resolved]
  - Purulent discharge [Recovered/Resolved]
  - Anxiety [Not Recovered/Not Resolved]
  - Device failure [Unknown]
  - Device malfunction [Unknown]

NARRATIVE: CASE EVENT DATE: 20230101
